FAERS Safety Report 4649942-2 (Version None)
Quarter: 2005Q2

REPORT INFORMATION
  Report Type: 
  Country: None (occurrence: None)
  Receive Date: 20050428
  Receipt Date: 20050425
  Transmission Date: 20051028
  Serious: Yes (Hospitalization)
  Sender: FDA-Public Use
  Company Number: A044-002-005559

PATIENT
  Age: 86 Year
  Sex: Male
  Weight: 50 kg

DRUGS (5)
  1. ARICEPT [Suspect]
     Indication: DEMENTIA ALZHEIMER'S TYPE
     Dosage: 5 MG, 1 IN 1 D, ORAL
     Route: 048
     Dates: start: 20040906, end: 20050218
  2. ALFUZOSINE (ALFUZOSIN) [Concomitant]
  3. CITALOPRAM HYDROBROMIDE [Concomitant]
  4. MORPHINE SULFATE [Concomitant]
  5. ENOXAPARINE (HEPARIN-FRACTION, SODIUM SALT) [Concomitant]

REACTIONS (2)
  - FAECES PALE [None]
  - LIVER FUNCTION TEST ABNORMAL [None]
